FAERS Safety Report 21123521 (Version 1)
Quarter: 2022Q3

REPORT INFORMATION
  Report Type: Report from Study
  Country: US (occurrence: US)
  Receive Date: 20220724
  Receipt Date: 20220724
  Transmission Date: 20221026
  Serious: Yes (Death, Other)
  Sender: FDA-Public Use
  Company Number: US-BRISTOL-MYERS SQUIBB COMPANY-2022-012537

PATIENT
  Age: 57 Year
  Sex: Male
  Weight: 80.74 kg

DRUGS (5)
  1. POMALYST [Suspect]
     Active Substance: POMALIDOMIDE
     Indication: Illness
     Route: 048
     Dates: start: 20211023
  2. POMALYST [Suspect]
     Active Substance: POMALIDOMIDE
     Indication: Plasma cell myeloma
     Dosage: FREQUENCY: 21 OUT OF 28 DAYS
     Route: 048
     Dates: start: 20211023
  3. THALOMID [Suspect]
     Active Substance: THALIDOMIDE
     Indication: Plasma cell myeloma
     Dosage: FREQUENCY: DAILY, 28/PK
     Route: 048
     Dates: start: 20220615
  4. ASPIRIN\CAFFEINE [Concomitant]
     Active Substance: ASPIRIN\CAFFEINE
     Indication: Product used for unknown indication
     Route: 065
  5. DEXAVET [DEXAMETHASONE] [Concomitant]
     Indication: Product used for unknown indication
     Route: 065

REACTIONS (3)
  - Malignant neoplasm progression [Unknown]
  - Product dose omission issue [Unknown]
  - Death [Fatal]
